FAERS Safety Report 8460550-8 (Version None)
Quarter: 2012Q2

REPORT INFORMATION
  Report Type: 
  Country: None (occurrence: None)
  Receive Date: 20120622
  Receipt Date: 20120613
  Transmission Date: 20120825
  Serious: Yes (Hospitalization, Disabling)
  Sender: FDA-Public Use
  Company Number: DE-ASTRAZENECA-2012SE39977

PATIENT
  Age: 51 Year
  Sex: Female
  Weight: 78 kg

DRUGS (6)
  1. SEROQUEL [Suspect]
     Route: 048
     Dates: start: 20110621, end: 20110714
  2. SEROQUEL [Suspect]
     Route: 048
     Dates: start: 20110715, end: 20110829
  3. SEROQUEL [Suspect]
     Route: 048
     Dates: start: 20100101, end: 20110819
  4. SEROQUEL [Suspect]
     Route: 048
     Dates: start: 20100101, end: 20110620
  5. LITHIUM CARBONATE [Concomitant]
     Route: 048
     Dates: start: 20100101
  6. CYMBALTA [Suspect]
     Route: 048
     Dates: start: 20100101, end: 20110819

REACTIONS (3)
  - CHOLELITHIASIS [None]
  - HEPATOMEGALY [None]
  - HEPATIC STEATOSIS [None]
